FAERS Safety Report 6828516-9 (Version None)
Quarter: 2010Q3

REPORT INFORMATION
  Report Type: 
  Country: None (occurrence: None)
  Receive Date: 20100709
  Receipt Date: 20100701
  Transmission Date: 20110219
  Serious: Yes (Hospitalization)
  Sender: FDA-Public Use
  Company Number: DE-ABBOTT-10P-062-0654940-00

PATIENT
  Sex: Male
  Weight: 134 kg

DRUGS (3)
  1. HUMIRA [Suspect]
     Indication: RHEUMATOID ARTHRITIS
     Route: 058
     Dates: start: 20100421
  2. EXFORGE [Concomitant]
     Indication: HYPERTENSION
     Dosage: 5/160 MG QD
     Route: 048
     Dates: start: 20090601
  3. BENZPROMARON [Concomitant]
     Indication: GOUT
     Route: 048
     Dates: start: 20090601

REACTIONS (1)
  - PANCREATITIS [None]
